FAERS Safety Report 4685398-1 (Version None)
Quarter: 2005Q2

REPORT INFORMATION
  Report Type: 
  Country: None (occurrence: None)
  Receive Date: 20050608
  Receipt Date: 20050527
  Transmission Date: 20051028
  Serious: Yes (Other)
  Sender: FDA-Public Use
  Company Number: FR-GLAXOSMITHKLINE-B0382567A

PATIENT
  Age: 35 Year
  Sex: Female

DRUGS (5)
  1. DEROXAT [Suspect]
     Indication: ILL-DEFINED DISORDER
     Dosage: 10MG PER DAY
     Route: 048
  2. DIANTALVIC [Suspect]
     Dosage: 6UNIT PER DAY
     Route: 048
  3. RIVOTRIL [Suspect]
     Route: 048
  4. XANAX [Suspect]
     Dosage: .5MG PER DAY
     Route: 048
  5. NEURONTIN [Suspect]
     Dosage: 900MG PER DAY
     Route: 048

REACTIONS (2)
  - ABORTION INDUCED [None]
  - DRUG EXPOSURE DURING PREGNANCY [None]
